FAERS Safety Report 7584416-0 (Version None)
Quarter: 2011Q2

REPORT INFORMATION
  Report Type: 
  Country: None (occurrence: None)
  Receive Date: 20110630
  Receipt Date: 20110512
  Transmission Date: 20111010
  Serious: Yes (Hospitalization, Other)
  Sender: FDA-Public Use
  Company Number: US-BAYER-201036938NA

PATIENT
  Age: 43 Year
  Sex: Female
  Weight: 65.76 kg

DRUGS (36)
  1. YAZ [Suspect]
     Indication: PREMENSTRUAL SYNDROME
     Dosage: 1 TAB / DAY
     Dates: start: 20081001, end: 20090108
  2. HYZAAR [Concomitant]
     Indication: HYPERTENSION
     Dosage: DAILY
  3. ROXICODONE [Concomitant]
  4. TETRACYCLINE [Concomitant]
  5. YASMIN [Suspect]
     Indication: MENORRHAGIA
     Dosage: 1 TAB / DAY
     Route: 048
     Dates: start: 20060201, end: 20070101
  6. GLUCOPHAGE [Concomitant]
     Indication: DIABETES MELLITUS
     Dosage: 500 MG, QD
  7. AMBIEN [Concomitant]
     Indication: SLEEP DISORDER
     Dosage: DAILY
  8. FLUOXETINE [Concomitant]
  9. ZOFRAN [Concomitant]
  10. PHENERGAN HCL [Concomitant]
     Indication: PAIN
  11. ARTHRITIS MEDICATION (NOS) [Concomitant]
  12. DIFLUCAN [Concomitant]
  13. LYRICA [Concomitant]
  14. NEXIUM [Concomitant]
  15. PROZAC [Concomitant]
     Indication: DEPRESSION
  16. PREVACID [Concomitant]
     Indication: GASTROOESOPHAGEAL REFLUX DISEASE
  17. TRICOR [Concomitant]
     Indication: BLOOD CHOLESTEROL INCREASED
  18. COUMADIN [Concomitant]
  19. OXYCONTIN [Concomitant]
  20. COMINOX [Concomitant]
  21. CASPOFUNGIN ACETATE [Concomitant]
  22. YASMIN [Suspect]
     Indication: PREMENSTRUAL SYNDROME
  23. YAZ [Suspect]
     Indication: MENORRHAGIA
     Dosage: 1 TAB / DAY
     Route: 048
     Dates: start: 20070401, end: 20071001
  24. ZETIA [Concomitant]
     Indication: BLOOD CHOLESTEROL INCREASED
     Dosage: 10 MG, HS
  25. VALIUM [Concomitant]
  26. VITAMIN B-12 [Concomitant]
  27. TOPROL-XL [Concomitant]
     Indication: HYPERTENSION
     Dosage: DAILY
  28. PROZAC [Concomitant]
     Indication: ANXIETY
  29. LOVENOX [Concomitant]
  30. XANAX [Concomitant]
  31. ULTRAM [Concomitant]
  32. INSULIN [Concomitant]
     Indication: TYPE 2 DIABETES MELLITUS
     Dosage: DRIP
  33. LEVAQUIN [Concomitant]
  34. ZOLPIDEM [Concomitant]
  35. DEXTROPROPOXYPHENE NAPSILATE W/PARACETAMOL [Concomitant]
  36. TYGACIL [Concomitant]

REACTIONS (15)
  - PAIN [None]
  - ENCEPHALOPATHY [None]
  - CHOLECYSTECTOMY [None]
  - SMALL INTESTINAL RESECTION [None]
  - AORTIC THROMBOSIS [None]
  - HEPATIC INFARCTION [None]
  - COMA [None]
  - HEPATECTOMY [None]
  - SKIN GRAFT [None]
  - AMNESIA [None]
  - CHOLECYSTITIS CHRONIC [None]
  - MUSCLE ATROPHY [None]
  - THROMBOSIS [None]
  - SPLENIC INFARCTION [None]
  - SPLENECTOMY [None]
